FAERS Safety Report 17262953 (Version 1)
Quarter: 2020Q1

REPORT INFORMATION
  Report Type: Spontaneous
  Country: CO (occurrence: CO)
  Receive Date: 20200113
  Receipt Date: 20200113
  Transmission Date: 20200409
  Serious: Yes (Other)
  Sender: FDA-Public Use
  Company Number: CO-PFIZER INC-2019166985

PATIENT
  Age: 60 Year
  Sex: Female

DRUGS (1)
  1. XELJANZ [Suspect]
     Active Substance: TOFACITINIB CITRATE
     Indication: RHEUMATOID ARTHRITIS
     Dosage: 5 MG, 2X/DAY
     Route: 048
     Dates: start: 201901

REACTIONS (6)
  - Malaise [Unknown]
  - Fatigue [Unknown]
  - Abdominal discomfort [Unknown]
  - Haematochezia [Unknown]
  - Asthenia [Unknown]
  - Feeling abnormal [Unknown]
